FAERS Safety Report 6888108-2 (Version None)
Quarter: 2010Q3

REPORT INFORMATION
  Report Type: 
  Country: None (occurrence: None)
  Receive Date: 20100730
  Receipt Date: 20100722
  Transmission Date: 20110219
  Serious: Yes (Death, Hospitalization)
  Sender: FDA-Public Use
  Company Number: FR-PFIZER INC-2010091536

PATIENT
  Age: 75 Year
  Sex: Male

DRUGS (5)
  1. TAHOR [Suspect]
  2. PLAVIX [Suspect]
     Dosage: UNK
     Route: 048
     Dates: start: 20060101, end: 20100528
  3. BISOPROLOL [Concomitant]
  4. PERINDOPRIL ERBUMINE [Concomitant]
  5. HUMALOG [Concomitant]

REACTIONS (1)
  - THROMBOTIC THROMBOCYTOPENIC PURPURA [None]
